FAERS Safety Report 11637426 (Version 2)
Quarter: 2015Q4

REPORT INFORMATION
  Report Type: Spontaneous
  Country: US (occurrence: US)
  Receive Date: 20151016
  Receipt Date: 20151111
  Transmission Date: 20160304
  Serious: Yes (Other)
  Sender: FDA-Public Use
  Company Number: US-PFIZER INC-2015331272

PATIENT
  Age: 74 Year
  Sex: Female
  Weight: 58.5 kg

DRUGS (7)
  1. METOPROLOL [Concomitant]
     Active Substance: METOPROLOL
  2. DIGOXIN. [Concomitant]
     Active Substance: DIGOXIN
  3. HYDROCODONE/APAP [Concomitant]
     Active Substance: ACETAMINOPHEN\HYDROCODONE BITARTRATE
     Dosage: UNK
  4. PRAVASTATIN [Concomitant]
     Active Substance: PRAVASTATIN\PRAVASTATIN SODIUM
  5. SUTENT [Suspect]
     Active Substance: SUNITINIB MALATE
     Indication: RENAL CANCER STAGE IV
     Dosage: 50 MG, CYCLIC (28 DAYS ON/14 DAYS OFF)
     Dates: start: 20150924
  6. COUMADIN [Concomitant]
     Active Substance: WARFARIN SODIUM
     Indication: ATRIAL FIBRILLATION
     Dosage: UNK
  7. LASIX [Concomitant]
     Active Substance: FUROSEMIDE

REACTIONS (7)
  - Arthritis infective [Unknown]
  - Asthenia [Unknown]
  - Sensation of foreign body [Unknown]
  - Weight decreased [Unknown]
  - Eating disorder [Unknown]
  - Dysgeusia [Unknown]
  - Nausea [Unknown]
